FAERS Safety Report 15256128 (Version 1)
Quarter: 2018Q3

REPORT INFORMATION
  Report Type: Spontaneous
  Country: US (occurrence: US)
  Receive Date: 20180718
  Receipt Date: 20180718
  Transmission Date: 20181010
  Serious: Yes (Hospitalization)
  Sender: FDA-Public Use
  Company Number: None

PATIENT
  Age: 87 Year
  Sex: Female

DRUGS (7)
  1. LIPITOR [Concomitant]
     Active Substance: ATORVASTATIN CALCIUM
  2. IRBESARTAN. [Concomitant]
     Active Substance: IRBESARTAN
  3. EZETIMIBE. [Concomitant]
     Active Substance: EZETIMIBE
  4. AZITHROMYCIN ANHYDROUS. [Concomitant]
     Active Substance: AZITHROMYCIN ANHYDROUS
  5. HCTZ [Concomitant]
     Active Substance: HYDROCHLOROTHIAZIDE
  6. DILTIA ZEM [Concomitant]
  7. MYCOPHENOLATE 500MG [Suspect]
     Active Substance: MYCOPHENOLIC ACID
     Indication: SCLERODERMA
     Route: 048

REACTIONS (1)
  - Cerebrovascular accident [None]

NARRATIVE: CASE EVENT DATE: 20180710
